FAERS Safety Report 13328523 (Version 1)
Quarter: 2017Q1

REPORT INFORMATION
  Report Type: Spontaneous
  Country: US (occurrence: US)
  Receive Date: 20170310
  Receipt Date: 20170310
  Transmission Date: 20170428
  Serious: No
  Sender: FDA-Public Use
  Company Number: None

PATIENT
  Age: 50 Year
  Sex: Female

DRUGS (1)
  1. MYCOPHENOLATE MOF CAP 250MG [Suspect]
     Active Substance: MYCOPHENOLATE MOFETIL

REACTIONS (4)
  - Feeling of body temperature change [None]
  - Neoplasm skin [None]
  - Aphasia [None]
  - Paraesthesia [None]

NARRATIVE: CASE EVENT DATE: 20070110
